FAERS Safety Report 13022028 (Version 1)
Quarter: 2016Q4

REPORT INFORMATION
  Report Type: Report from Study
  Country: US (occurrence: US)
  Receive Date: 20161213
  Receipt Date: 20161213
  Transmission Date: 20170207
  Serious: Yes (Hospitalization, Other)
  Sender: FDA-Public Use
  Company Number: US-AMGEN-USASL2016173141

PATIENT
  Sex: Female

DRUGS (1)
  1. ENBREL [Suspect]
     Active Substance: ETANERCEPT
     Indication: PSORIATIC ARTHROPATHY
     Dosage: UNK
     Route: 065

REACTIONS (6)
  - Gastrointestinal disorder [Unknown]
  - Body fat disorder [Unknown]
  - Vomiting [Unknown]
  - Blood potassium decreased [Unknown]
  - Insomnia [Unknown]
  - Adverse event [Unknown]

NARRATIVE: CASE EVENT DATE: 2016
